FAERS Safety Report 7863580-X (Version None)
Quarter: 2011Q4

REPORT INFORMATION
  Report Type: 
  Country: None (occurrence: None)
  Receive Date: 20111027
  Receipt Date: 20101207
  Transmission Date: 20120403
  Serious: No
  Sender: FDA-Public Use
  Company Number: US-AMGEN-USASP2010008056

PATIENT
  Age: 57 Year
  Sex: Female

DRUGS (1)
  1. ENBREL [Suspect]
     Indication: RHEUMATOID ARTHRITIS
     Dates: start: 20050728

REACTIONS (9)
  - INJECTION SITE SWELLING [None]
  - ARTHRALGIA [None]
  - DIZZINESS [None]
  - RHEUMATOID ARTHRITIS [None]
  - INFECTION [None]
  - INJECTION SITE RASH [None]
  - INJECTION SITE REACTION [None]
  - INJECTION SITE ERYTHEMA [None]
  - INJECTION SITE PAIN [None]
